FAERS Safety Report 20333540 (Version 2)
Quarter: 2022Q1

REPORT INFORMATION
  Report Type: Report from Study
  Country: US (occurrence: US)
  Receive Date: 20220113
  Receipt Date: 20220128
  Transmission Date: 20220424
  Serious: Yes (Other)
  Sender: FDA-Public Use
  Company Number: US-JAZZ-2022-US-000051

PATIENT
  Sex: Female

DRUGS (12)
  1. XYREM [Suspect]
     Active Substance: SODIUM OXYBATE
     Indication: Narcolepsy
     Dosage: TAKE BY MOUTH 4.5GM DILUTED IN 60 MLS OF WATER AT BEDTIME AND REPEAT IN 2+1/2 TO 4 HOURS AS DIRECTED
     Route: 048
     Dates: start: 200706
  2. XYREM [Suspect]
     Active Substance: SODIUM OXYBATE
     Indication: Cataplexy
  3. XYREM [Suspect]
     Active Substance: SODIUM OXYBATE
     Indication: Somnolence
  4. PREGNENOLONE [Concomitant]
     Active Substance: PREGNENOLONE
     Indication: Product used for unknown indication
     Dosage: UNK
     Dates: start: 20190601
  5. PROGESTERONE [Concomitant]
     Active Substance: PROGESTERONE
     Indication: Product used for unknown indication
     Dosage: UNK
     Dates: start: 20190325
  6. LIOTHYRONINE SODIUM [Concomitant]
     Active Substance: LIOTHYRONINE SODIUM
     Indication: Product used for unknown indication
     Dosage: 4 MICROGRAM
     Dates: start: 20190325
  7. VALCYTE [Concomitant]
     Active Substance: VALGANCICLOVIR HYDROCHLORIDE
     Indication: Product used for unknown indication
     Dosage: 450 MILLIGRAM
     Dates: start: 20190528
  8. DOXYCYCLINE HYCLATE [Concomitant]
     Active Substance: DOXYCYCLINE HYCLATE
     Indication: Product used for unknown indication
     Dosage: 100 MILLIGRAM
     Dates: start: 20191217
  9. CARAFATE [Concomitant]
     Active Substance: SUCRALFATE
     Indication: Product used for unknown indication
     Dosage: 1 UNK
     Dates: start: 20190528
  10. LORAZEPAM [Concomitant]
     Active Substance: LORAZEPAM
     Indication: Product used for unknown indication
     Dosage: UNK
     Dates: start: 20220105
  11. SYMBYAX [Concomitant]
     Active Substance: FLUOXETINE HYDROCHLORIDE\OLANZAPINE
     Indication: Product used for unknown indication
     Dosage: 50 MILLIGRAM
     Dates: start: 20210601
  12. CALCIUM\MAGNESIUM [Concomitant]
     Active Substance: CALCIUM\MAGNESIUM
     Indication: Product used for unknown indication
     Dosage: UNK
     Dates: start: 20180101

REACTIONS (2)
  - Heavy menstrual bleeding [Unknown]
  - Intentional dose omission [Unknown]
